FAERS Safety Report 20785290 (Version 1)
Quarter: 2022Q2

REPORT INFORMATION
  Report Type: Spontaneous
  Country: US (occurrence: None)
  Receive Date: 20220504
  Receipt Date: 20220504
  Transmission Date: 20220720
  Serious: Yes (Hospitalization)
  Sender: FDA-Public Use
  Company Number: None

PATIENT
  Sex: Male

DRUGS (6)
  1. ENBREL [Suspect]
     Active Substance: ETANERCEPT
     Indication: Psoriatic arthropathy
     Dosage: FREQUENCY : WEEKLY;?
     Route: 058
     Dates: start: 20150902
  2. ENBREL [Suspect]
     Active Substance: ETANERCEPT
     Dosage: OTHER QUANTITY : 1 INJECTION;?FREQUENCY : WEEKLY;?
     Route: 058
  3. FOLIC ACID [Concomitant]
     Active Substance: FOLIC ACID
  4. METHOTREXATE [Concomitant]
     Active Substance: METHOTREXATE
  5. SULFASALAZINE DELAYED-RELEASE [Concomitant]
     Active Substance: SULFASALAZINE
  6. VITAMIN C [Concomitant]
     Active Substance: ASCORBIC ACID

REACTIONS (2)
  - Therapy interrupted [None]
  - COVID-19 [None]
